FAERS Safety Report 11495843 (Version 3)
Quarter: 2016Q1

REPORT INFORMATION
  Report Type: Spontaneous
  Country: US (occurrence: US)
  Receive Date: 20150911
  Receipt Date: 20160204
  Transmission Date: 20160525
  Serious: Yes (Other)
  Sender: FDA-Public Use
  Company Number: US-JNJFOC-20150904255

PATIENT
  Age: 49 Year
  Sex: Male
  Weight: 116.58 kg

DRUGS (2)
  1. INVOKANA [Suspect]
     Active Substance: CANAGLIFLOZIN
     Indication: TYPE 2 DIABETES MELLITUS
     Route: 048
     Dates: start: 20150330, end: 20150706
  2. INDOCIN [Suspect]
     Active Substance: INDOMETHACIN\INDOMETHACIN SODIUM
     Indication: GOUT
     Route: 065

REACTIONS (5)
  - Incorrect dose administered [Unknown]
  - Hepatic enzyme increased [Recovered/Resolved]
  - Jaundice [Recovered/Resolved]
  - Pancreatic carcinoma [Unknown]
  - Inappropriate schedule of drug administration [Unknown]

NARRATIVE: CASE EVENT DATE: 2015
